FAERS Safety Report 11766119 (Version 4)
Quarter: 2016Q1

REPORT INFORMATION
  Report Type: Report from Study
  Country: JP (occurrence: JP)
  Receive Date: 20151122
  Receipt Date: 20160217
  Transmission Date: 20160525
  Serious: Yes (Hospitalization, Disabling)
  Sender: FDA-Public Use
  Company Number: JP-BAYER-2015-469713

PATIENT
  Age: 60 Year
  Sex: Male

DRUGS (1)
  1. ACETYLSALICYLIC ACID({=100 MG) [Suspect]
     Active Substance: ASPIRIN
     Indication: NEOPLASM PROPHYLAXIS
     Dosage: 100 MG, QD
     Route: 048
     Dates: start: 20151101, end: 20151112

REACTIONS (5)
  - Chronic gastritis [None]
  - Thalamus haemorrhage [Not Recovered/Not Resolved]
  - Gastrooesophageal reflux disease [None]
  - Cerebral ventricular rupture [Recovered/Resolved with Sequelae]
  - Putamen haemorrhage [Not Recovered/Not Resolved]

NARRATIVE: CASE EVENT DATE: 20151105
